FAERS Safety Report 8950273 (Version 1)
Quarter: 2012Q4

REPORT INFORMATION
  Report Type: 
  Country: CN (occurrence: CN)
  Receive Date: 20121205
  Receipt Date: 20121205
  Transmission Date: 20130627
  Serious: Yes (Other)
  Sender: FDA-Public Use
  Company Number: PHHY2012CN108994

PATIENT
  Age: 70 Year
  Sex: Male

DRUGS (1)
  1. LOTENSIN [Suspect]
     Indication: BLOOD PRESSURE INCREASED
     Dosage: 10 mg, QD
     Route: 042
     Dates: start: 20110420, end: 20110506

REACTIONS (6)
  - Blood pressure inadequately controlled [Recovered/Resolved]
  - White blood cell count decreased [Recovered/Resolved]
  - Neutrophil count decreased [Recovered/Resolved]
  - Agranulocytosis [Recovered/Resolved]
  - Pyrexia [Recovered/Resolved]
  - Pain [Recovered/Resolved]
